FAERS Safety Report 8005859-7 (Version None)
Quarter: 2011Q4

REPORT INFORMATION
  Report Type: 
  Country: None (occurrence: None)
  Receive Date: 20111223
  Receipt Date: 20111208
  Transmission Date: 20120403
  Serious: Yes (Other)
  Sender: FDA-Public Use
  Company Number: US-ROCHE-793787

PATIENT
  Sex: Male
  Weight: 61.29 kg

DRUGS (1)
  1. ACCUTANE [Suspect]
     Indication: ACNE
     Route: 048
     Dates: start: 19850415, end: 19860515

REACTIONS (11)
  - INFLAMMATORY BOWEL DISEASE [None]
  - INTESTINAL OBSTRUCTION [None]
  - SUICIDAL IDEATION [None]
  - COLITIS ULCERATIVE [None]
  - HERNIA [None]
  - CROHN'S DISEASE [None]
  - INTESTINAL HAEMORRHAGE [None]
  - HEPATIC ENZYME INCREASED [None]
  - DEPRESSION [None]
  - IRRITABLE BOWEL SYNDROME [None]
  - STRESS [None]
